FAERS Safety Report 25088673 (Version 1)
Quarter: 2025Q1

REPORT INFORMATION
  Report Type: Spontaneous
  Country: DE (occurrence: DE)
  Receive Date: 20250318
  Receipt Date: 20250318
  Transmission Date: 20250408
  Serious: Yes (Other)
  Sender: ACCORD
  Company Number: DE-MLMSERVICE-20250304-PI431193-00101-1

PATIENT
  Age: 41 Year
  Sex: Female

DRUGS (16)
  1. PACLITAXEL [Suspect]
     Active Substance: PACLITAXEL
     Indication: NUT midline carcinoma
     Dosage: WEEKLY, 3 CYCLICALS
  2. CISPLATIN [Suspect]
     Active Substance: CISPLATIN
     Indication: NUT midline carcinoma
     Dosage: Q3 WEEKLY, 3 CYCLICALS
  3. PEMBROLIZUMAB [Suspect]
     Active Substance: PEMBROLIZUMAB
     Indication: NUT midline carcinoma
  4. PACLITAXEL [Suspect]
     Active Substance: PACLITAXEL
     Indication: Nasopharyngeal cancer
     Dosage: WEEKLY, 3 CYCLICALS
  5. PACLITAXEL [Suspect]
     Active Substance: PACLITAXEL
     Indication: Metastases to lymph nodes
     Dosage: WEEKLY, 3 CYCLICALS
  6. PACLITAXEL [Suspect]
     Active Substance: PACLITAXEL
     Indication: Metastases to liver
     Dosage: WEEKLY, 3 CYCLICALS
  7. PACLITAXEL [Suspect]
     Active Substance: PACLITAXEL
     Indication: Metastases to lung
     Dosage: WEEKLY, 3 CYCLICALS
  8. PACLITAXEL [Suspect]
     Active Substance: PACLITAXEL
     Indication: Metastases to bone
     Dosage: WEEKLY, 3 CYCLICALS
  9. PACLITAXEL [Suspect]
     Active Substance: PACLITAXEL
     Indication: Tumour invasion
     Dosage: WEEKLY, 3 CYCLICALS
  10. CISPLATIN [Suspect]
     Active Substance: CISPLATIN
     Indication: Metastases to lymph nodes
     Dosage: Q3 WEEKLY, 3 CYCLICALS
  11. CISPLATIN [Suspect]
     Active Substance: CISPLATIN
     Indication: Metastases to liver
     Dosage: Q3 WEEKLY, 3 CYCLICALS
  12. CISPLATIN [Suspect]
     Active Substance: CISPLATIN
     Indication: Metastases to lung
     Dosage: Q3 WEEKLY, 3 CYCLICALS
  13. CISPLATIN [Suspect]
     Active Substance: CISPLATIN
     Indication: Metastases to bone
     Dosage: Q3 WEEKLY, 3 CYCLICALS
  14. CISPLATIN [Suspect]
     Active Substance: CISPLATIN
     Indication: Tumour invasion
     Dosage: Q3 WEEKLY, 3 CYCLICALS
  15. PEMBROLIZUMAB [Suspect]
     Active Substance: PEMBROLIZUMAB
     Indication: Nasopharyngeal cancer
  16. CISPLATIN [Suspect]
     Active Substance: CISPLATIN
     Indication: Nasopharyngeal cancer
     Dosage: Q3 WEEKLY, 3 CYCLICALS

REACTIONS (3)
  - Thrombocytopenia [Unknown]
  - Thyroiditis [Unknown]
  - Pneumonitis [Unknown]
